FAERS Safety Report 10747985 (Version 1)
Quarter: 2015Q1

REPORT INFORMATION
  Report Type: Spontaneous
  Country: IT (occurrence: None)
  Receive Date: 20150127
  Receipt Date: 20150127
  Transmission Date: 20150721
  Serious: Yes (Other)
  Sender: FDA-Public Use
  Company Number: NL01PV15.38328

PATIENT
  Age: 41 Year
  Sex: Female

DRUGS (6)
  1. ATORVASTATIN (ATORVASTATIN) [Concomitant]
     Active Substance: ATORVASTATIN
  2. CARBAMAZEPINE. [Suspect]
     Active Substance: CARBAMAZEPINE
  3. REBOXETINE [Suspect]
     Active Substance: REBOXETINE
  4. ZOLPIDEM [Suspect]
     Active Substance: ZOLPIDEM\ZOLPIDEM TARTRATE
  5. DIAZEPAM (DIAZEPAM) [Suspect]
     Active Substance: DIAZEPAM
  6. AGOMELATINE [Suspect]
     Active Substance: AGOMELATINE

REACTIONS (6)
  - Pyrexia [None]
  - Thrombocytopenia [None]
  - Decreased appetite [None]
  - Hepatic function abnormal [None]
  - Myalgia [None]
  - Rash erythematous [None]
